FAERS Safety Report 4975207-5 (Version None)
Quarter: 2006Q2

REPORT INFORMATION
  Report Type: 
  Country: None (occurrence: None)
  Receive Date: 20060418
  Receipt Date: 20060410
  Transmission Date: 20061013
  Serious: Yes (Hospitalization)
  Sender: FDA-Public Use
  Company Number: US-JNJFOC-20060402334

PATIENT
  Sex: Female
  Weight: 136.08 kg

DRUGS (10)
  1. REMICADE [Suspect]
     Dosage: THIRD INFUSION RECEIVED ON 30-JAN-2006 OR 17-FEB-2006
     Route: 042
  2. REMICADE [Suspect]
     Route: 042
  3. REMICADE [Suspect]
     Route: 042
  4. LEVOTHROID [Concomitant]
     Indication: HYPOTHYROIDISM
  5. BUPROPION HCL [Concomitant]
     Indication: DEPRESSION
  6. TOPAMAX [Concomitant]
     Indication: DEPRESSION
  7. GEODON [Concomitant]
     Indication: DEPRESSION
  8. CLONAZEPAM [Concomitant]
     Indication: DEPRESSION
  9. LISINOPRIL [Concomitant]
     Indication: HYPERTENSION
  10. PAXIL CR [Concomitant]
     Indication: DEPRESSION

REACTIONS (5)
  - ANAPHYLACTIC SHOCK [None]
  - BLINDNESS [None]
  - DYSPNOEA [None]
  - HYPOAESTHESIA [None]
  - INFUSION RELATED REACTION [None]
